FAERS Safety Report 6386679-6 (Version None)
Quarter: 2009Q4

REPORT INFORMATION
  Report Type: 
  Country: None (occurrence: None)
  Receive Date: 20091002
  Receipt Date: 20090925
  Transmission Date: 20100525
  Serious: Yes (Other)
  Sender: FDA-Public Use
  Company Number: JP-MERCK-0909USA04980

PATIENT
  Age: 8 Day
  Sex: Male
  Weight: 2 kg

DRUGS (1)
  1. PEPCID [Suspect]
     Route: 048

REACTIONS (2)
  - DEVICE RELATED INFECTION [None]
  - PNEUMONIA ASPIRATION [None]
